FAERS Safety Report 19565147 (Version 2)
Quarter: 2021Q3

REPORT INFORMATION
  Report Type: Spontaneous
  Country: FR (occurrence: FR)
  Receive Date: 20210716
  Receipt Date: 20210820
  Transmission Date: 20211014
  Serious: Yes (Hospitalization, Other)
  Sender: FDA-Public Use
  Company Number: FR-STRIDES ARCOLAB LIMITED-2021SP024994

PATIENT
  Age: 53 Year
  Sex: Female

DRUGS (2)
  1. IBUPROFEN. [Suspect]
     Active Substance: IBUPROFEN
     Indication: ODYNOPHAGIA
  2. IBUPROFEN. [Suspect]
     Active Substance: IBUPROFEN
     Indication: EAR PAIN
     Dosage: 400 MILLIGRAM, (SINGLE DOSE)
     Route: 065

REACTIONS (4)
  - Off label use [Unknown]
  - Pasteurella infection [Recovered/Resolved]
  - Epiglottitis [Recovered/Resolved]
  - Bacteraemia [Recovered/Resolved]
